FAERS Safety Report 15095300 (Version 1)
Quarter: 2018Q3

REPORT INFORMATION
  Report Type: Spontaneous
  Country: US (occurrence: US)
  Receive Date: 20180702
  Receipt Date: 20180702
  Transmission Date: 20181010
  Serious: Yes (Hospitalization)
  Sender: FDA-Public Use
  Company Number: US-BEH-2018092233

PATIENT
  Age: 92 Year
  Sex: Female
  Weight: 58.96 kg

DRUGS (16)
  1. LMX                                /00033401/ [Concomitant]
  2. LEVALBUTEROL. [Concomitant]
     Active Substance: LEVALBUTEROL
  3. BENICAR [Concomitant]
     Active Substance: OLMESARTAN MEDOXOMIL
  4. HIZENTRA [Suspect]
     Active Substance: HUMAN IMMUNOGLOBULIN G
     Dosage: UNK
     Route: 058
  5. ACETAMINOPHEN. [Concomitant]
     Active Substance: ACETAMINOPHEN
  6. SIMVASTATIN. [Concomitant]
     Active Substance: SIMVASTATIN
  7. RANITIDINE. [Concomitant]
     Active Substance: RANITIDINE
  8. EPINEPHRINE. [Concomitant]
     Active Substance: EPINEPHRINE
  9. NATEGLINIDE. [Concomitant]
     Active Substance: NATEGLINIDE
  10. POTASSIUM CHLORIDE. [Concomitant]
     Active Substance: POTASSIUM CHLORIDE
  11. DILTIAZEM. [Concomitant]
     Active Substance: DILTIAZEM
  12. ALVESCO [Concomitant]
     Active Substance: CICLESONIDE
  13. HIZENTRA [Suspect]
     Active Substance: HUMAN IMMUNOGLOBULIN G
     Indication: IMMUNODEFICIENCY COMMON VARIABLE
     Dosage: 10 G, EVERY TWO WEEKS
     Route: 058
     Dates: start: 20121121
  14. DIPHENHYDRAMINE. [Concomitant]
     Active Substance: DIPHENHYDRAMINE
  15. MEDROL [Concomitant]
     Active Substance: METHYLPREDNISOLONE
  16. PRESERVISION [Concomitant]
     Active Substance: MINERALS\VITAMINS

REACTIONS (2)
  - Hospitalisation [Unknown]
  - Transcatheter aortic valve implantation [Unknown]

NARRATIVE: CASE EVENT DATE: 20180611
